FAERS Safety Report 4497685-0 (Version None)
Quarter: 2004Q4

REPORT INFORMATION
  Report Type: 
  Country: None (occurrence: None)
  Receive Date: 20041104
  Receipt Date: 20041021
  Transmission Date: 20050328
  Serious: Yes (Disabling)
  Sender: FDA-Public Use
  Company Number: 2004S1000215

PATIENT
  Age: 59 Year
  Sex: Female
  Weight: 132 kg

DRUGS (3)
  1. ACITRETIN            (ACITRETIN) [Suspect]
     Indication: CUTANEOUS LUPUS ERYTHEMATOSUS
     Dosage: 20 MG; QD; PO
     Route: 048
     Dates: start: 20040316, end: 20040504
  2. LOSEC [Concomitant]
  3. PREDNISOLONE [Concomitant]

REACTIONS (9)
  - ALOPECIA [None]
  - BLISTER [None]
  - CHEILITIS [None]
  - CONJUNCTIVITIS [None]
  - DERMATITIS EXFOLIATIVE [None]
  - EPISTAXIS [None]
  - ERYTHEMA [None]
  - MALAISE [None]
  - RECTAL HAEMORRHAGE [None]
